FAERS Safety Report 11595209 (Version 3)
Quarter: 2020Q3

REPORT INFORMATION
  Report Type: Report from Study
  Country: GB (occurrence: GB)
  Receive Date: 20151006
  Receipt Date: 20191216
  Transmission Date: 20201104
  Serious: Yes (Other)
  Sender: FDA-Public Use
  Company Number: GB-ROCHE-1639827

PATIENT

DRUGS (5)
  1. CAPECITABINE. [Suspect]
     Active Substance: CAPECITABINE
     Indication: GASTROOESOPHAGEAL CANCER
     Dosage: DAY 1?21, FOR A MAXIMUM OF 8 CYCLES
     Route: 065
  2. OXALIPLATIN. [Suspect]
     Active Substance: OXALIPLATIN
     Indication: GASTROOESOPHAGEAL CANCER
     Route: 065
  3. SAPITINIB. [Suspect]
     Active Substance: SAPITINIB
     Route: 048
  4. SAPITINIB. [Suspect]
     Active Substance: SAPITINIB
     Indication: GASTROOESOPHAGEAL CANCER
     Route: 048
  5. SAPITINIB. [Suspect]
     Active Substance: SAPITINIB
     Route: 048

REACTIONS (19)
  - Haematuria [Unknown]
  - Gastrointestinal disorder [Unknown]
  - Pyrexia [Unknown]
  - Diarrhoea [Unknown]
  - Pain [Unknown]
  - Dehydration [Unknown]
  - Hypophosphataemia [Unknown]
  - Dyspepsia [Unknown]
  - Sepsis [Unknown]
  - Nausea [Unknown]
  - Pulmonary embolism [Unknown]
  - Vomiting [Unknown]
  - Neutropenia [Unknown]
  - Gastrointestinal haemorrhage [Unknown]
  - Liver function test abnormal [Unknown]
  - Infection [Unknown]
  - Wound dehiscence [Unknown]
  - Rash [Unknown]
  - Fatigue [Unknown]
